FAERS Safety Report 4661559-2 (Version None)
Quarter: 2005Q2

REPORT INFORMATION
  Report Type: 
  Country: None (occurrence: None)
  Receive Date: 20050512
  Receipt Date: 20050512
  Transmission Date: 20051028
  Serious: Yes (Hospitalization)
  Sender: FDA-Public Use
  Company Number: None

PATIENT
  Sex: Female
  Weight: 85.2762 kg

DRUGS (2)
  1. LIPITOR [Suspect]
     Indication: HYPERLIPIDAEMIA
     Dosage: 20 MG DAY
     Dates: start: 20050129, end: 20050224
  2. LIPITOR [Suspect]
     Indication: HYPERLIPIDAEMIA
     Dosage: 10 MG DAY
     Dates: start: 20050315, end: 20050426

REACTIONS (4)
  - BLOOD DISORDER [None]
  - BLUE TOE SYNDROME [None]
  - PUNCTURE SITE HAEMORRHAGE [None]
  - WOUND HAEMORRHAGE [None]
